FAERS Safety Report 4627716-6 (Version None)
Quarter: 2005Q2

REPORT INFORMATION
  Report Type: 
  Country: None (occurrence: None)
  Receive Date: 20050401
  Receipt Date: 20040616
  Transmission Date: 20051028
  Serious: No
  Sender: FDA-Public Use
  Company Number: 8268

PATIENT
  Age: 66 Year
  Sex: Female

DRUGS (2)
  1. AMIODARONE HCL [Suspect]
     Dosage: 600 MG ONCE
     Route: 042
  2. FUROSEMIDE [Suspect]
     Route: 042

REACTIONS (3)
  - HYPOKALAEMIA [None]
  - TORSADE DE POINTES [None]
  - VENTRICULAR FIBRILLATION [None]
